FAERS Safety Report 4589789-9 (Version None)
Quarter: 2005Q1

REPORT INFORMATION
  Report Type: 
  Country: None (occurrence: None)
  Receive Date: 20050223
  Receipt Date: 20050218
  Transmission Date: 20050727
  Serious: Yes (Life-Threatening, Hospitalization)
  Sender: FDA-Public Use
  Company Number: US-GLAXOSMITHKLINE-A0546309A

PATIENT
  Sex: Female

DRUGS (1)
  1. RELAFEN [Suspect]
     Route: 048
     Dates: start: 20000101

REACTIONS (2)
  - BURN OF INTERNAL ORGANS [None]
  - THERMAL BURN [None]
